FAERS Safety Report 19561391 (Version 1)
Quarter: 2021Q3

REPORT INFORMATION
  Report Type: Spontaneous
  Country: US (occurrence: US)
  Receive Date: 20210715
  Receipt Date: 20210715
  Transmission Date: 20211014
  Serious: Yes (Death, Life-Threatening, Hospitalization, Disabling)
  Sender: FDA-Public Use
  Company Number: None

PATIENT
  Age: 21 Year
  Sex: Male

DRUGS (1)
  1. ISOTRETINOIN. [Suspect]
     Active Substance: ISOTRETINOIN
     Indication: ACNE
     Route: 048
     Dates: start: 20210217, end: 20210715

REACTIONS (25)
  - Suicidal ideation [None]
  - Affect lability [None]
  - Fatigue [None]
  - Irritability [None]
  - Dizziness [None]
  - Headache [None]
  - Idiopathic intracranial hypertension [None]
  - Pain [None]
  - Aggression [None]
  - Anxiety [None]
  - Lethargy [None]
  - Dysphonia [None]
  - Hallucination, auditory [None]
  - Euphoric mood [None]
  - Anger [None]
  - Somnolence [None]
  - Paraesthesia [None]
  - Depression [None]
  - Insomnia [None]
  - Malaise [None]
  - Nervousness [None]
  - Seizure [None]
  - Completed suicide [None]
  - Panic attack [None]
  - Psychotic disorder [None]

NARRATIVE: CASE EVENT DATE: 20210715
